FAERS Safety Report 16165194 (Version 1)
Quarter: 2019Q2

REPORT INFORMATION
  Report Type: Spontaneous
  Country: ES (occurrence: ES)
  Receive Date: 20190405
  Receipt Date: 20190405
  Transmission Date: 20190711
  Serious: Yes (Other)
  Sender: FDA-Public Use
  Company Number: ES-MYLANLABS-2019M1031165

PATIENT
  Age: 49 Year
  Sex: Female

DRUGS (8)
  1. DOLUTEGRAVIR [Suspect]
     Active Substance: DOLUTEGRAVIR
     Dosage: FOLLOWING A 14-DAY RIFAMPIN WASHOUT
     Route: 065
  2. IVERMECTIN. [Concomitant]
     Active Substance: IVERMECTIN
     Indication: ACARODERMATITIS
     Dosage: 6 MILLIGRAM, QW
     Route: 065
  3. PENTAMIDINE [Concomitant]
     Active Substance: PENTAMIDINE
     Indication: PRODUCT USED FOR UNKNOWN INDICATION
     Dosage: 300 MILLIGRAM, MONTHLY
     Route: 065
  4. EMTRICITABINE/TENOFOVIR DISOPROXIL FUMARATE [Suspect]
     Active Substance: EMTRICITABINE\TENOFOVIR DISOPROXIL FUMARATE
     Indication: ANTIRETROVIRAL THERAPY
     Route: 065
  5. RIFAMPIN. [Concomitant]
     Active Substance: RIFAMPIN
     Indication: STAPHYLOCOCCAL INFECTION
     Dosage: 600 MILLIGRAM, QD
     Route: 065
  6. LEVOFLOXACIN. [Concomitant]
     Active Substance: LEVOFLOXACIN
     Indication: PRODUCT USED FOR UNKNOWN INDICATION
     Dosage: 750 MILLIGRAM, QD
     Route: 065
  7. COTRIMOXAZOLE [Concomitant]
     Active Substance: SULFAMETHOXAZOLE\TRIMETHOPRIM
     Indication: PRODUCT USED FOR UNKNOWN INDICATION
     Dosage: TRIMETHOPRIM-SULFAMETHOXAZOLE (TMP/STX) 800/160 MG/DAY
     Route: 065
  8. DOLUTEGRAVIR [Suspect]
     Active Substance: DOLUTEGRAVIR
     Indication: ANTIRETROVIRAL THERAPY
     Dosage: 50 MILLIGRAM
     Route: 065

REACTIONS (8)
  - Pathogen resistance [Recovered/Resolved]
  - Drug level decreased [None]
  - Drug hypersensitivity [None]
  - Hepatic enzyme increased [None]
  - Drug interaction [None]
  - Virologic failure [Recovered/Resolved]
  - Acarodermatitis [None]
  - Cytomegalovirus viraemia [None]
